FAERS Safety Report 19975413 (Version 2)
Quarter: 2021Q4

REPORT INFORMATION
  Report Type: Spontaneous
  Country: US (occurrence: US)
  Receive Date: 20211020
  Receipt Date: 20211022
  Transmission Date: 20220303
  Serious: No
  Sender: FDA-Public Use
  Company Number: US-SANOFI-00812741

PATIENT
  Age: 77 Year
  Sex: Female

DRUGS (1)
  1. LANTUS SOLOSTAR [Suspect]
     Active Substance: INSULIN GLARGINE
     Indication: Type 1 diabetes mellitus
     Dosage: (7-9 IU) QD
     Route: 065

REACTIONS (3)
  - Blood glucose fluctuation [Unknown]
  - Injection site pain [Unknown]
  - Product storage error [Unknown]
